FAERS Safety Report 17751837 (Version 1)
Quarter: 2020Q2

REPORT INFORMATION
  Report Type: Spontaneous
  Country: DE (occurrence: DE)
  Receive Date: 20200506
  Receipt Date: 20200506
  Transmission Date: 20200714
  Serious: Yes (Other)
  Sender: FDA-Public Use
  Company Number: NVSC2020DE120353

PATIENT
  Sex: Female

DRUGS (6)
  1. ETOPOSIDE. [Suspect]
     Active Substance: ETOPOSIDE
     Indication: GENE MUTATION
     Dosage: 75 MG/M2, CYCLIC (SECOND CYCLE ON DAY 1 AND DAY 3 (25% REDUCED DOSE OF THE ICE REGIMEN))
     Route: 065
     Dates: start: 201102
  2. CARBOPLATIN. [Suspect]
     Active Substance: CARBOPLATIN
     Indication: ALVEOLAR RHABDOMYOSARCOMA
     Dosage: 100 MG/M2, CYCLIC (FIRST CYCLE ON DAY 1 AND DAY 3 (50% REDUCED DOSE OF THE ICE REGIMEN))
     Route: 065
     Dates: start: 201101
  3. HOLOXAN [Suspect]
     Active Substance: IFOSFAMIDE
     Indication: ALVEOLAR RHABDOMYOSARCOMA
     Dosage: UNK UNK, CYCLIC (FIRST CYCLE ON DAY 1 AND DAY 3 (50% REDUCED DOSE OF THE ICE REGIMEN))
     Route: 065
     Dates: start: 201101
  4. CARBOPLATIN. [Suspect]
     Active Substance: CARBOPLATIN
     Indication: GENE MUTATION
     Dosage: 50 MG/M2, CYCLIC (SECOND CYCLE ON DAY 1 AND DAY 3 (25% REDUCED DOSE OF THE ICE REGIMEN))
     Route: 065
     Dates: start: 201102
  5. ETOPOSIDE. [Suspect]
     Active Substance: ETOPOSIDE
     Indication: ALVEOLAR RHABDOMYOSARCOMA
     Dosage: 150 MG/M2, CYCLIC (FIRST CYCLE ON DAY 1 AND DAY 3 (50% REDUCED DOSE OF THE ICE REGIMEN))
     Route: 065
     Dates: start: 201101
  6. HOLOXAN [Suspect]
     Active Substance: IFOSFAMIDE
     Indication: GENE MUTATION
     Dosage: UNK UNK, CYCLIC (SECOND CYCLE ON DAY 1 AND DAY 3 (25% REDUCED DOSE OF THE ICE REGIMEN)) (POWDER FOR
     Route: 065
     Dates: start: 201102

REACTIONS (1)
  - Erythema [Unknown]
